FAERS Safety Report 15585563 (Version 3)
Quarter: 2018Q4

REPORT INFORMATION
  Report Type: Report from Study
  Country: GB (occurrence: GB)
  Receive Date: 20181105
  Receipt Date: 20181214
  Transmission Date: 20190205
  Serious: Yes (Hospitalization, Other)
  Sender: FDA-Public Use
  Company Number: GB-IPSEN BIOPHARMACEUTICALS, INC.-2016-07931

PATIENT
  Sex: Female

DRUGS (1)
  1. SOMATULINE AUTOGEL 60MG [Suspect]
     Active Substance: LANREOTIDE ACETATE
     Indication: ACROMEGALY
     Dosage: SOMATULINE AUTOGEL 60MG/0.3ML SOLUTION FOR INJECTION PRE-FILLED SYRINGES
     Route: 058

REACTIONS (6)
  - Inappropriate schedule of product administration [Unknown]
  - Incorrect product administration duration [Unknown]
  - Product dose omission [Unknown]
  - Metastasis [Unknown]
  - Cholelithiasis [Unknown]
  - Product storage error [Unknown]
